FAERS Safety Report 5844050-7 (Version None)
Quarter: 2008Q3

REPORT INFORMATION
  Report Type: 
  Country: None (occurrence: None)
  Receive Date: 20080813
  Receipt Date: 20080804
  Transmission Date: 20090109
  Serious: Yes (Other)
  Sender: FDA-Public Use
  Company Number: US-ELI_LILLY_AND_COMPANY-US200808000522

PATIENT
  Sex: Female

DRUGS (1)
  1. EVISTA [Suspect]
     Indication: OSTEOPENIA
     Dosage: 60 MG, DAILY (1/D)
     Dates: start: 20030101, end: 20080804

REACTIONS (5)
  - ANEURYSM [None]
  - BLINDNESS TRANSIENT [None]
  - HAEMORRHAGE [None]
  - THROMBOSIS [None]
  - VISUAL IMPAIRMENT [None]
